FAERS Safety Report 19692020 (Version 1)
Quarter: 2021Q3

REPORT INFORMATION
  Report Type: Spontaneous
  Country: US (occurrence: US)
  Receive Date: 20210812
  Receipt Date: 20210812
  Transmission Date: 20211014
  Serious: Yes (Hospitalization, Other)
  Sender: FDA-Public Use
  Company Number: US-PFIZER INC-HQWYE699917DEC03

PATIENT
  Age: 21 Year
  Sex: Female

DRUGS (2)
  1. MISOPROSTOL. [Suspect]
     Active Substance: MISOPROSTOL
     Indication: ABORTION INDUCED
     Dosage: 800 UG (APPROXIMATELY 5 WEEKS GESTATION)
     Route: 065
  2. METHOTREXATE SODIUM. [Suspect]
     Active Substance: METHOTREXATE SODIUM
     Indication: ABORTION INDUCED
     Dosage: 50 MG/M2 (APPROXIMATELY 4 WEEKS GESTATION)
     Route: 065

REACTIONS (8)
  - Drug ineffective for unapproved indication [Unknown]
  - Off label use [Unknown]
  - Amniocentesis abnormal [Unknown]
  - Breech presentation [Unknown]
  - Induced abortion failed [Unknown]
  - Maternal exposure timing unspecified [Unknown]
  - Premature separation of placenta [Unknown]
  - Premature labour [Unknown]
